FAERS Safety Report 9501713 (Version 1)
Quarter: 2013Q3

REPORT INFORMATION
  Report Type: Spontaneous
  Country: US (occurrence: US)
  Receive Date: 20130905
  Receipt Date: 20130905
  Transmission Date: 20140515
  Serious: Yes (Other)
  Sender: FDA-Public Use
  Company Number: US-PFIZER INC-2013255292

PATIENT
  Age: 55 Year
  Sex: Female
  Weight: 90.7 kg

DRUGS (4)
  1. NORPACE [Suspect]
     Indication: HYPERTENSION
     Dosage: 150 MG, 2X/DAY
  2. METFORMIN HCL [Suspect]
     Indication: DIABETES MELLITUS
     Dosage: 100 MG, 1X/DAY
  3. PREDNISONE [Suspect]
     Indication: ALLERGY TO ANIMAL
     Dosage: 60 MG, 1X/DAY
  4. CARTIA XT [Suspect]
     Indication: ATRIAL FIBRILLATION
     Dosage: 240 MG, DAILY

REACTIONS (7)
  - Diabetes mellitus [Recovered/Resolved]
  - Allergy to animal [Recovered/Resolved]
  - Asthma [Recovered/Resolved]
  - Malaise [Recovered/Resolved]
  - Alopecia [Recovered/Resolved]
  - Blood calcium increased [Unknown]
  - Vitamin D decreased [Unknown]
